FAERS Safety Report 7748676 (Version 3)
Quarter: 2013Q1

REPORT INFORMATION
  Report Type: Spontaneous
  Country: US (occurrence: US)
  Receive Date: 20110105
  Receipt Date: 20130314
  Transmission Date: 20140127
  Serious: Yes (Other)
  Sender: FDA-Public Use
  Company Number: US-JNJFOC-20100804535

PATIENT
  Age: 59 None
  Sex: Male

DRUGS (2)
  1. LEVAQUIN [Suspect]
     Indication: POSTOPERATIVE WOUND INFECTION
     Route: 048
     Dates: start: 20070101, end: 20091231
  2. STEROIDS NOS [Suspect]
     Indication: PRODUCT USED FOR UNKNOWN INDICATION
     Route: 065

REACTIONS (6)
  - Tendon rupture [Unknown]
  - Muscle rupture [Unknown]
  - Muscle rupture [Unknown]
  - Tendon rupture [Unknown]
  - Meniscus injury [Recovering/Resolving]
  - Tendon rupture [Unknown]
